FAERS Safety Report 4371054-6 (Version None)
Quarter: 2004Q2

REPORT INFORMATION
  Report Type: 
  Country: None (occurrence: None)
  Receive Date: 20040527
  Receipt Date: 20040506
  Transmission Date: 20050107
  Serious: Yes (Death)
  Sender: FDA-Public Use
  Company Number: USA040566848

PATIENT
  Age: 17 Year
  Sex: Male

DRUGS (2)
  1. STRATTERA [Suspect]
     Dosage: 49 MG DAY
  2. LEXAPRO [Concomitant]

REACTIONS (1)
  - COMPLETED SUICIDE [None]
